FAERS Safety Report 10262919 (Version 2)
Quarter: 2014Q2

REPORT INFORMATION
  Report Type: Report from Study
  Country: US (occurrence: US)
  Receive Date: 20140626
  Receipt Date: 20140626
  Transmission Date: 20141212
  Serious: Yes (Death)
  Sender: FDA-Public Use
  Company Number: US-MYLANLABS-2013S1022758

PATIENT
  Age: 96 Year
  Sex: Female
  Weight: 40.82 kg

DRUGS (7)
  1. CLOZAPINE TABLETS [Suspect]
     Indication: MAJOR DEPRESSION
     Route: 048
     Dates: start: 20090309, end: 2013
  2. APAP [Concomitant]
     Dosage: USED 325MG TABLETS
     Route: 048
  3. CALCIUM PLUS VITAMIN D [Concomitant]
     Dosage: 600/400MG
     Route: 048
  4. LAMOTRIGINE [Concomitant]
     Dosage: USED 25MG TABLETS
     Route: 048
  5. METOPROLOL [Concomitant]
     Route: 048
  6. POLYETHYLENE GLYCOL [Concomitant]
     Route: 048
  7. VITAMIN D [Concomitant]
     Route: 048

REACTIONS (1)
  - Pneumonia [Fatal]
